FAERS Safety Report 23860641 (Version 1)
Quarter: 2024Q2

REPORT INFORMATION
  Report Type: Other
  Country: ZA (occurrence: None)
  Receive Date: 20240516
  Receipt Date: 20240516
  Transmission Date: 20240715
  Serious: No
  Sender: FDA-Public Use
  Company Number: ZA-ROCHE-3561945

PATIENT
  Sex: Male

DRUGS (1)
  1. OCREVUS [Suspect]
     Active Substance: OCRELIZUMAB
     Indication: Relapsing-remitting multiple sclerosis
     Dosage: THEN 600 MG EVERY 6 MONTH
     Route: 041
     Dates: start: 202206

REACTIONS (11)
  - Expanded disability status scale score increased [Unknown]
  - Demyelination [Unknown]
  - Inflammation [Unknown]
  - Magnetic resonance imaging abnormal [Unknown]
  - Intervertebral disc space narrowing [Unknown]
  - Multiple sclerosis [Unknown]
  - Facet joint syndrome [Unknown]
  - Vertebral foraminal stenosis [Unknown]
  - Haemangioma of bone [Unknown]
  - Spondylitis [Unknown]
  - Ligamentum flavum hypertrophy [Unknown]

NARRATIVE: CASE EVENT DATE: 20240430
